FAERS Safety Report 6732945-1 (Version None)
Quarter: 2010Q2

REPORT INFORMATION
  Report Type: 
  Country: None (occurrence: None)
  Receive Date: 20100519
  Receipt Date: 20100517
  Transmission Date: 20101027
  Serious: Yes (Hospitalization)
  Sender: FDA-Public Use
  Company Number: SE-ROCHE-703401

PATIENT
  Sex: Female
  Weight: 65 kg

DRUGS (7)
  1. PEGINTERFERON ALFA-2A [Suspect]
     Route: 058
     Dates: start: 20100303
  2. RIBAVIRIN [Suspect]
     Route: 048
     Dates: start: 20100303
  3. ARANESP [Concomitant]
     Route: 058
     Dates: start: 20100217
  4. ENALAPRIL [Concomitant]
     Indication: HYPERTENSION
     Route: 048
     Dates: start: 20090922
  5. SANDIMMUNE [Concomitant]
     Indication: IMMUNOSUPPRESSION
     Dosage: DOSE:2.5, FREQUENCY:BID, DOSE IS INCREASED.
     Route: 048
     Dates: start: 20070101
  6. IMUREL [Concomitant]
     Indication: IMMUNOSUPPRESSION
     Dosage: DOSE INCREASED
     Route: 048
     Dates: start: 20070101
  7. PREDNISOLONE [Concomitant]
     Route: 048
     Dates: start: 20070101

REACTIONS (1)
  - TRANSPLANT REJECTION [None]
